FAERS Safety Report 12724998 (Version 1)
Quarter: 2016Q3

REPORT INFORMATION
  Report Type: Spontaneous
  Country: JP (occurrence: JP)
  Receive Date: 20160908
  Receipt Date: 20160908
  Transmission Date: 20161109
  Serious: Yes (Hospitalization)
  Sender: FDA-Public Use
  Company Number: JP-WARNER CHILCOTT, LLC-1057167

PATIENT
  Age: 75 Year
  Sex: Female

DRUGS (5)
  1. BENET [Suspect]
     Active Substance: RISEDRONATE SODIUM
     Indication: OSTEOPOROSIS
     Route: 048
  2. LOXONIN [Concomitant]
     Active Substance: LOXOPROFEN SODIUM
     Dates: start: 20160113, end: 20160120
  3. REBAMIPIDE [Concomitant]
     Active Substance: REBAMIPIDE
     Dates: start: 20160113, end: 20160120
  4. GASLON [Concomitant]
     Active Substance: IRSOGLADINE MALEATE
     Dates: start: 20150901, end: 20150908
  5. DICLOFENAC SODIUM. [Concomitant]
     Active Substance: DICLOFENAC SODIUM
     Dates: start: 20150901, end: 20150908

REACTIONS (6)
  - Asthenia [Recovered/Resolved]
  - General physical health deterioration [Recovered/Resolved]
  - Diarrhoea [Recovered/Resolved]
  - Nausea [Recovered/Resolved]
  - Chills [Recovered/Resolved]
  - Vomiting [Recovered/Resolved]

NARRATIVE: CASE EVENT DATE: 20150703
